FAERS Safety Report 9374844 (Version 1)
Quarter: 2013Q2

REPORT INFORMATION
  Report Type: Spontaneous
  Country: US (occurrence: US)
  Receive Date: 20130628
  Receipt Date: 20130628
  Transmission Date: 20140414
  Serious: No
  Sender: FDA-Public Use
  Company Number: US-GLAXOSMITHKLINE-A1006108A

PATIENT
  Sex: Female

DRUGS (5)
  1. ZYBAN [Suspect]
     Indication: SMOKING CESSATION THERAPY
     Route: 048
  2. NICOTINE GUM [Suspect]
     Indication: SMOKING CESSATION THERAPY
     Route: 002
  3. NICOTINE PATCH [Suspect]
     Indication: SMOKING CESSATION THERAPY
     Route: 062
  4. SMOKELESS CIGARETTE [Suspect]
     Indication: SMOKING CESSATION THERAPY
     Route: 055
  5. TOBACCO LEAF [Suspect]

REACTIONS (1)
  - Drug ineffective [Unknown]
